FAERS Safety Report 5892139-9 (Version None)
Quarter: 2008Q3

REPORT INFORMATION
  Report Type: 
  Country: None (occurrence: None)
  Receive Date: 20080922
  Receipt Date: 20080917
  Transmission Date: 20090109
  Serious: Yes (Death, Hospitalization)
  Sender: FDA-Public Use
  Company Number: JP-ABBOTT-08P-087-0477112-00

PATIENT
  Sex: Male

DRUGS (5)
  1. KALETRA [Suspect]
     Indication: HIV INFECTION
     Dosage: 4 TABS, 800/200MG, DAILY
     Route: 048
     Dates: start: 20061124, end: 20071106
  2. ZONEGRAN [Concomitant]
     Indication: CONVULSION
     Dosage: 300MG, DAILY
     Route: 048
     Dates: start: 20060628, end: 20071106
  3. CARBAMAZEPINE [Concomitant]
     Indication: CONVULSION
     Dosage: 300MG, DAILY
     Route: 048
     Dates: start: 20060713, end: 20071106
  4. LAMIVUDINE [Concomitant]
     Indication: HIV INFECTION
     Route: 048
     Dates: start: 20040728, end: 20071106
  5. ABACAVIR [Concomitant]
     Indication: HIV INFECTION
     Route: 048
     Dates: start: 20041217, end: 20071106

REACTIONS (4)
  - PNEUMONIA [None]
  - SEPTIC SHOCK [None]
  - STATUS EPILEPTICUS [None]
  - VOMITING [None]
